FAERS Safety Report 8966625 (Version 2)
Quarter: 2013Q1

REPORT INFORMATION
  Report Type: Spontaneous
  Country: AU (occurrence: None)
  Receive Date: 20121206
  Receipt Date: 20130222
  Transmission Date: 20140127
  Serious: Yes (Other)
  Sender: FDA-Public Use
  Company Number: AU-1195462

PATIENT
  Sex: Male

DRUGS (5)
  1. AZOPT [Suspect]
     Indication: INTRAOCULAR PRESSURE INCREASED
     Dosage: AZOPT 1% OPHTHALMIC SUSPENSION
  2. BRIMONIDINE [Suspect]
     Indication: INTRAOCULAR PRESSURE INCREASED
     Dosage: TO NOT CONTINUING?
  3. TIMOLOL (TIMOLOL) (NONE) [Suspect]
     Indication: INTRAOCULAR PRESSURE INCREASED
     Dosage: TO UNKNOWN?
     Route: 031
  4. LATANOPROST (LATANOPROST) (NONE) [Suspect]
     Indication: INTRAOCULAR PRESSURE INCREASED
     Dosage: TO UNKNOWN
  5. RANIBIZUMAB INJECTION [Concomitant]

REACTIONS (5)
  - Drug ineffective [None]
  - Hypersensitivity [None]
  - Optic neuropathy [None]
  - Cataract [None]
  - Intraocular pressure increased [None]
